FAERS Safety Report 4642235-9 (Version None)
Quarter: 2005Q2

REPORT INFORMATION
  Report Type: 
  Country: None (occurrence: None)
  Receive Date: 20050420
  Receipt Date: 20050407
  Transmission Date: 20051028
  Serious: Yes (Other)
  Sender: FDA-Public Use
  Company Number: 2005033106

PATIENT
  Age: 78 Year
  Sex: Female
  Weight: 48 kg

DRUGS (4)
  1. CABERGOLINE [Suspect]
     Indication: PARKINSON'S DISEASE
     Dosage: 0.25 MG, ORAL
     Route: 048
     Dates: start: 20050111, end: 20050120
  2. MADOPAR (BENSERAZIDE HYDROCHLORIDE, LEVODOPA) [Concomitant]
  3. DROXIDOPA (DROXIDOPA) [Concomitant]
  4. FUROSEMIDE 9FUROSEMIDE0 [Concomitant]

REACTIONS (1)
  - PANCYTOPENIA [None]
